FAERS Safety Report 7866368-9 (Version None)
Quarter: 2011Q4

REPORT INFORMATION
  Report Type: 
  Country: None (occurrence: None)
  Receive Date: 20111028
  Receipt Date: 20110606
  Transmission Date: 20120403
  Serious: No
  Sender: FDA-Public Use
  Company Number: US-GLAXOSMITHKLINE-A0930396A

PATIENT
  Age: 79 Year
  Sex: Female

DRUGS (16)
  1. PREVACID [Concomitant]
  2. VITAMIN-MINERAL COMPOUND TAB [Concomitant]
  3. FISH OIL [Concomitant]
  4. LOSARTAN WITH HYDROCHLOROTHIAZIDE [Concomitant]
  5. COENZYME Q10 [Concomitant]
  6. SPIRIVA [Suspect]
     Indication: CHRONIC OBSTRUCTIVE PULMONARY DISEASE
     Dosage: 18MCG TWICE PER DAY
     Route: 055
     Dates: start: 20110501
  7. IPRATROPIUM BROMIDE AND ALBUTEROL SULFATE [Concomitant]
  8. ZOLPIDEM [Concomitant]
  9. CALCIUM CARBONATE [Concomitant]
  10. CELEBREX [Concomitant]
  11. OMEPRAZOLE [Concomitant]
  12. BIOTIN [Concomitant]
  13. CENTRUM SILVER [Concomitant]
  14. ADVAIR DISKUS 100/50 [Suspect]
     Indication: CHRONIC OBSTRUCTIVE PULMONARY DISEASE
     Dosage: 1PUFF TWICE PER DAY
     Route: 055
  15. PREDNISONE [Suspect]
     Route: 048
     Dates: start: 20110501, end: 20110601
  16. TYLENOL PM [Concomitant]

REACTIONS (2)
  - WEIGHT DECREASED [None]
  - GASTROOESOPHAGEAL REFLUX DISEASE [None]
